FAERS Safety Report 8168647-7 (Version None)
Quarter: 2012Q1

REPORT INFORMATION
  Report Type: 
  Country: None (occurrence: None)
  Receive Date: 20120103
  Receipt Date: 20110926
  Transmission Date: 20120608
  Serious: No
  Sender: FDA-Public Use
  Company Number: AE-2011-001814

PATIENT
  Age: 51 Year
  Sex: Female

DRUGS (8)
  1. INTERFERON [Concomitant]
  2. INCIVEK [Suspect]
     Dosage: 3375 MG (1125 MG,3 IN 1 D),ORAL
     Route: 048
     Dates: start: 20110906
  3. ASPIRIN [Concomitant]
  4. ATENOLOL [Concomitant]
  5. NEXIUM [Concomitant]
  6. RIBAVIRIN [Concomitant]
  7. MULTIVITAMIN [Concomitant]
  8. MAXZIDE [Concomitant]

REACTIONS (3)
  - ABDOMINAL PAIN [None]
  - ABDOMINAL TENDERNESS [None]
  - INTENTIONAL OVERDOSE [None]
